FAERS Safety Report 7763888-2 (Version None)
Quarter: 2011Q3

REPORT INFORMATION
  Report Type: 
  Country: None (occurrence: None)
  Receive Date: 20110921
  Receipt Date: 20110914
  Transmission Date: 20111222
  Serious: Yes (Other)
  Sender: FDA-Public Use
  Company Number: US-TEVA-300787USA

PATIENT
  Sex: Female

DRUGS (1)
  1. VENLAFAXINE HYDROCHLORIDE [Suspect]

REACTIONS (5)
  - HEADACHE [None]
  - PRODUCT SUBSTITUTION ISSUE [None]
  - GENERAL PHYSICAL HEALTH DETERIORATION [None]
  - INSOMNIA [None]
  - ANXIETY [None]
